FAERS Safety Report 5806189-1 (Version None)
Quarter: 2008Q3

REPORT INFORMATION
  Report Type: 
  Country: None (occurrence: None)
  Receive Date: 20080709
  Receipt Date: 20080709
  Transmission Date: 20090109
  Serious: Yes (Life-Threatening)
  Sender: FDA-Public Use
  Company Number: None

PATIENT
  Age: 54 Year
  Sex: Male

DRUGS (2)
  1. PACLITAXEL [Suspect]
     Dosage: 460 MG ONCE  IV
     Route: 042
     Dates: start: 20080325, end: 20080325
  2. CARBOPLATIN [Suspect]
     Dosage: 760 MG ONCE IV
     Route: 042
     Dates: start: 20080325, end: 20080325

REACTIONS (4)
  - CANDIDIASIS [None]
  - LEUKOPENIA [None]
  - NEUTROPENIA [None]
  - SEPSIS [None]
